FAERS Safety Report 17814117 (Version 1)
Quarter: 2020Q2

REPORT INFORMATION
  Report Type: Spontaneous
  Country: MX (occurrence: MX)
  Receive Date: 20200522
  Receipt Date: 20200522
  Transmission Date: 20200714
  Serious: Yes (Other)
  Sender: FDA-Public Use
  Company Number: MX-ROCHE-2598140

PATIENT
  Sex: Male

DRUGS (5)
  1. KADCYLA [Suspect]
     Active Substance: ADO-TRASTUZUMAB EMTANSINE
     Indication: BLADDER ADENOCARCINOMA STAGE UNSPECIFIED
     Dosage: 3 VIALS OF 100 ML
     Route: 042
     Dates: start: 201903
  2. KADCYLA [Suspect]
     Active Substance: ADO-TRASTUZUMAB EMTANSINE
     Indication: HER2 POSITIVE BREAST CANCER
     Dosage: 3 VIALS OF 100 ML
     Route: 042
     Dates: start: 20200402
  3. HERCEPTIN [Suspect]
     Active Substance: TRASTUZUMAB
     Indication: HER2 POSITIVE BREAST CANCER
  4. HERCEPTIN [Suspect]
     Active Substance: TRASTUZUMAB
     Indication: BLADDER ADENOCARCINOMA STAGE UNSPECIFIED
     Route: 042
     Dates: start: 201911, end: 202002
  5. TAXOL [Concomitant]
     Active Substance: PACLITAXEL
     Indication: BLADDER ADENOCARCINOMA STAGE UNSPECIFIED
     Route: 065
     Dates: start: 201911

REACTIONS (4)
  - Metastatic neoplasm [Unknown]
  - Bladder cancer [Unknown]
  - Intentional product use issue [Unknown]
  - Off label use [Unknown]
